FAERS Safety Report 15295902 (Version 1)
Quarter: 2018Q3

REPORT INFORMATION
  Report Type: Report from Study
  Country: US (occurrence: US)
  Receive Date: 20180820
  Receipt Date: 20180820
  Transmission Date: 20181010
  Serious: Yes (Hospitalization, Other)
  Sender: FDA-Public Use
  Company Number: PHHO2018US003503

PATIENT
  Sex: Male
  Weight: 107.1 kg

DRUGS (3)
  1. GSK2118436 [Suspect]
     Active Substance: DABRAFENIB
     Dosage: UNK
     Route: 048
     Dates: start: 20180125, end: 20180513
  2. GSK2118436 [Suspect]
     Active Substance: DABRAFENIB
     Indication: MALIGNANT MELANOMA
     Dosage: 150 MG, BID
     Route: 048
     Dates: start: 20180111, end: 20180119
  3. TRAMETINIB [Suspect]
     Active Substance: TRAMETINIB
     Indication: MALIGNANT MELANOMA
     Dosage: 2 MG, QD
     Route: 048
     Dates: start: 20180111, end: 20180513

REACTIONS (5)
  - Influenza like illness [Recovering/Resolving]
  - Hyponatraemia [Recovering/Resolving]
  - Neutrophil count decreased [Recovering/Resolving]
  - Pyrexia [Recovering/Resolving]
  - Pyrexia [Recovered/Resolved]

NARRATIVE: CASE EVENT DATE: 20180119
